FAERS Safety Report 13920954 (Version 2)
Quarter: 2017Q3

REPORT INFORMATION
  Report Type: Spontaneous
  Country: CN (occurrence: CN)
  Receive Date: 20170830
  Receipt Date: 20170913
  Transmission Date: 20171127
  Serious: Yes (Other)
  Sender: FDA-Public Use
  Company Number: CN-ASTRAZENECA-2017SE87011

PATIENT
  Sex: Male

DRUGS (1)
  1. GEFITINIB. [Suspect]
     Active Substance: GEFITINIB
     Route: 065

REACTIONS (4)
  - Cerebral atrophy [Unknown]
  - Cognitive disorder [Unknown]
  - Cerebral ischaemia [Unknown]
  - Mental disorder [Unknown]
